FAERS Safety Report 8630242 (Version 2)
Quarter: 2012Q4

REPORT INFORMATION
  Report Type: 
  Country: JP (occurrence: JP)
  Receive Date: 20120622
  Receipt Date: 20121011
  Transmission Date: 20130627
  Serious: Yes (Hospitalization)
  Sender: FDA-Public Use
  Company Number: JP-UCBSA-059768

PATIENT
  Age: 90 Year
  Sex: Female

DRUGS (5)
  1. XYZAL [Suspect]
     Indication: RHINITIS ALLERGIC
     Route: 048
     Dates: start: 20120521, end: 20120525
  2. FOSAMAC [Concomitant]
     Indication: OSTEOPOROSIS
     Dosage: STRENGTH: 35 MG
     Route: 048
  3. CALCITAMIN [Concomitant]
     Indication: OSTEOPOROSIS
     Route: 048
  4. ASPARA-CA [Concomitant]
     Indication: OSTEOPOROSIS
     Route: 048
  5. REBAMIPIDE [Concomitant]
     Indication: GASTRITIS
     Route: 048

REACTIONS (3)
  - Atrioventricular block complete [Recovered/Resolved with Sequelae]
  - Dizziness [Unknown]
  - Chest pain [Unknown]
